FAERS Safety Report 4736647-2 (Version None)
Quarter: 2005Q3

REPORT INFORMATION
  Report Type: 
  Country: None (occurrence: None)
  Receive Date: 20050808
  Receipt Date: 20050511
  Transmission Date: 20060218
  Serious: Yes (Hospitalization, Other)
  Sender: FDA-Public Use
  Company Number: 2005CG00939

PATIENT
  Age: 555 Month
  Sex: Male
  Weight: 91 kg

DRUGS (1)
  1. CRESTOR [Suspect]
     Indication: HYPERCHOLESTEROLAEMIA
     Route: 048
     Dates: start: 20041119, end: 20050511

REACTIONS (1)
  - CHOLECYSTITIS CHRONIC [None]
